FAERS Safety Report 14880134 (Version 3)
Quarter: 2019Q2

REPORT INFORMATION
  Report Type: Spontaneous
  Country: US (occurrence: US)
  Receive Date: 20180511
  Receipt Date: 20190610
  Transmission Date: 20190711
  Serious: Yes (Hospitalization, Other)
  Sender: FDA-Public Use
  Company Number: US-SA-2018SA131759

PATIENT
  Age: 51 Year
  Sex: Male

DRUGS (3)
  1. LUMIZYME [Suspect]
     Active Substance: ALGLUCOSIDASE ALFA
     Indication: GLYCOGEN STORAGE DISEASE TYPE II
     Dosage: UNK UNK,QOW
     Route: 041
  2. TESTOSTERONE. [Concomitant]
     Active Substance: TESTOSTERONE
     Dosage: UNK UNK,UNK
     Route: 065
  3. LUMIZYME [Suspect]
     Active Substance: ALGLUCOSIDASE ALFA
     Dosage: UNK
     Route: 041
     Dates: start: 2016

REACTIONS (11)
  - Urinary fistula [Unknown]
  - Diarrhoea [Unknown]
  - Nephrolithiasis [Unknown]
  - Pneumaturia [Unknown]
  - Dysphagia [Unknown]
  - Withdrawal syndrome [Unknown]
  - Pulmonary thrombosis [Recovered/Resolved]
  - Pain [Unknown]
  - Respiratory distress [Unknown]
  - Pancreatitis [Unknown]
  - Escherichia urinary tract infection [Unknown]
